FAERS Safety Report 22268511 (Version 1)
Quarter: 2023Q2

REPORT INFORMATION
  Report Type: Spontaneous
  Country: FR (occurrence: None)
  Receive Date: 20230430
  Receipt Date: 20230430
  Transmission Date: 20230722
  Serious: Yes (Hospitalization)
  Sender: FDA-Public Use
  Company Number: FR-ROCHE-3339372

PATIENT
  Age: 66 Year
  Sex: Female

DRUGS (8)
  1. RIVOTRIL [Suspect]
     Active Substance: CLONAZEPAM
     Indication: Trigeminal neuralgia
     Dosage: 10 DROP IN 1 DAY
     Route: 048
     Dates: start: 20221129
  2. RIVOTRIL [Suspect]
     Active Substance: CLONAZEPAM
     Dosage: DROPS ON 04/01 AND DECREASE OF ONE DROP EVERY 3 TO 4 DAYS
     Route: 048
     Dates: start: 20230104
  3. LYRICA [Suspect]
     Active Substance: PREGABALIN
     Indication: Trigeminal neuralgia
     Dosage: 300 MG IN 1 DAY
     Route: 048
     Dates: start: 20221122
  4. LYRICA [Suspect]
     Active Substance: PREGABALIN
     Dosage: 75 MG EVERY 5 TO 6 DAYS TO TRY TO STOP IT
     Route: 048
  5. TRILEPTAL [Suspect]
     Active Substance: OXCARBAZEPINE
     Indication: Trigeminal neuralgia
     Dosage: 900 MG IN 1 DAY
     Route: 048
     Dates: start: 20221129
  6. SKENAN [Suspect]
     Active Substance: MORPHINE SULFATE
     Indication: Trigeminal neuralgia
     Dosage: 20 MILLIGRAM IN 1 DAY
     Route: 048
     Dates: start: 20221129, end: 20230104
  7. BRINZOLAMIDE [Concomitant]
     Active Substance: BRINZOLAMIDE
     Dosage: 1 DROP IN // 2 DROP, FREQUENCY:TWICE (1 DROP MORNING AND NOON )
  8. LATANOPROST;TIMOLOL [Concomitant]
     Dosage: 1 DROP IN 1 DAY, IN EVENING

REACTIONS (3)
  - Balance disorder [Not Recovered/Not Resolved]
  - Sedation [Not Recovered/Not Resolved]
  - Off label use [Unknown]

NARRATIVE: CASE EVENT DATE: 20221123
